FAERS Safety Report 6573405-0 (Version None)
Quarter: 2010Q1

REPORT INFORMATION
  Report Type: 
  Country: None (occurrence: None)
  Receive Date: 20100208
  Receipt Date: 20100127
  Transmission Date: 20100710
  Serious: Yes (Death)
  Sender: FDA-Public Use
  Company Number: US-PFIZER INC-2010012177

PATIENT
  Age: 71 Year
  Sex: Female
  Weight: 72.562 kg

DRUGS (1)
  1. SUTENT [Suspect]
     Indication: METASTATIC RENAL CELL CARCINOMA
     Dates: start: 20070101

REACTIONS (2)
  - DEATH [None]
  - ORAL PAIN [None]
